FAERS Safety Report 13616398 (Version 1)
Quarter: 2017Q2

REPORT INFORMATION
  Report Type: Spontaneous
  Country: US (occurrence: US)
  Receive Date: 20170606
  Receipt Date: 20170606
  Transmission Date: 20170830
  Serious: Yes (Other)
  Sender: FDA-Public Use
  Company Number: None

PATIENT
  Age: 62 Year
  Sex: Female
  Weight: 90 kg

DRUGS (7)
  1. OXYCONTIN [Concomitant]
     Active Substance: OXYCODONE HYDROCHLORIDE
  2. SERTRALINE [Concomitant]
     Active Substance: SERTRALINE HYDROCHLORIDE
  3. NEXIUM [Concomitant]
     Active Substance: ESOMEPRAZOLE MAGNESIUM
  4. VITAMIN D [Concomitant]
     Active Substance: CHOLECALCIFEROL
  5. OXYCODONE 30 MG. [Suspect]
     Active Substance: OXYCODONE
     Indication: PAIN
     Dosage: ?          QUANTITY:1 TABLET(S);?EVERY 6 HOURS ORAL
     Route: 048
     Dates: start: 20030102, end: 20170525
  6. RANITADINE [Concomitant]
  7. LYSINE [Concomitant]
     Active Substance: LYSINE

REACTIONS (6)
  - Hepatic pain [None]
  - Faeces discoloured [None]
  - Rash vesicular [None]
  - Muscle spasms [None]
  - Abdominal pain [None]
  - Choking [None]

NARRATIVE: CASE EVENT DATE: 20170318
